FAERS Safety Report 8519218-1 (Version None)
Quarter: 2012Q3

REPORT INFORMATION
  Report Type: 
  Country: None (occurrence: None)
  Receive Date: 20120718
  Receipt Date: 20120706
  Transmission Date: 20120928
  Serious: No
  Sender: FDA-Public Use
  Company Number: US-B.I. PHARMACEUTICALS,INC./RIDGEFIELD-2012-BP-15148BP

PATIENT
  Sex: Female

DRUGS (15)
  1. MIRAPEX [Suspect]
     Indication: PARKINSON'S DISEASE
     Dosage: 4.5 MG
     Route: 048
     Dates: start: 20120706
  2. ENBREL [Concomitant]
     Indication: RHEUMATOID ARTHRITIS
     Route: 058
  3. MUCINEX [Concomitant]
     Dosage: 1200 MG
     Route: 048
  4. XOPENEX [Concomitant]
     Route: 055
  5. FENTANYL [Concomitant]
     Indication: PAIN
     Route: 061
  6. NYSTATIN [Concomitant]
  7. SINEMET [Concomitant]
     Indication: PARKINSON'S DISEASE
  8. ERGOCALCIFEROL [Concomitant]
  9. FLUTICASONE PROPIONATE [Concomitant]
     Indication: RHINITIS ALLERGIC
     Route: 045
  10. LIDODERM [Concomitant]
  11. LORATADINE [Concomitant]
     Indication: RHINITIS ALLERGIC
     Dosage: 10 MG
     Route: 048
  12. PANTOPRAZOLE [Concomitant]
     Dosage: 40 MG
     Route: 048
  13. ACETAMINOPHEN [Concomitant]
     Indication: PAIN
     Route: 048
  14. LEVOTHYROXINE SODIUM [Concomitant]
     Indication: HYPOTHYROIDISM
     Route: 048
  15. EVISTA [Concomitant]
     Indication: OSTEOPOROSIS
     Dosage: 60 MG
     Route: 048

REACTIONS (1)
  - VIBRATORY SENSE INCREASED [None]
